FAERS Safety Report 11150961 (Version 1)
Quarter: 2015Q2

REPORT INFORMATION
  Report Type: Spontaneous
  Country: US (occurrence: None)
  Receive Date: 20150528
  Receipt Date: 20150528
  Transmission Date: 20150821
  Serious: Yes (Other)
  Sender: FDA-Public Use
  Company Number: 2015-021668

PATIENT
  Sex: Female

DRUGS (1)
  1. UP+UP THREE-STEP ACNE CARE SYSTEM (GENERIC PROACTIV/BENZOYL PEROXIDE) [Suspect]
     Active Substance: BENZOYL PEROXIDE

REACTIONS (2)
  - Drug hypersensitivity [None]
  - Drug ineffective [None]

NARRATIVE: CASE EVENT DATE: 20150506
